FAERS Safety Report 17953376 (Version 1)
Quarter: 2020Q2

REPORT INFORMATION
  Report Type: Spontaneous
  Country: US (occurrence: US)
  Receive Date: 20200628
  Receipt Date: 20200628
  Transmission Date: 20200714
  Serious: Yes (Hospitalization, Other)
  Sender: FDA-Public Use
  Company Number: US-B.I. PHARMACEUTICALS,INC./RIDGEFIELD-2020-BI-031101

PATIENT
  Age: 73 Year
  Sex: Male

DRUGS (1)
  1. PRADAXA [Suspect]
     Active Substance: DABIGATRAN ETEXILATE MESYLATE
     Indication: ATRIAL FIBRILLATION
     Route: 065

REACTIONS (8)
  - Vomiting [Unknown]
  - Coagulopathy [Unknown]
  - Transitional cell carcinoma [Unknown]
  - Acute kidney injury [Unknown]
  - Coagulation time prolonged [Unknown]
  - Hepatic function abnormal [Unknown]
  - Melaena [Unknown]
  - Abdominal pain [Unknown]
